FAERS Safety Report 19099027 (Version 1)
Quarter: 2021Q2

REPORT INFORMATION
  Report Type: Report from Study
  Country: CA (occurrence: CA)
  Receive Date: 20210406
  Receipt Date: 20210406
  Transmission Date: 20210717
  Serious: Yes (Other)
  Sender: FDA-Public Use
  Company Number: CA-PFIZER INC-2021349131

PATIENT
  Age: 65 Year
  Sex: Female

DRUGS (17)
  1. HYDROCORTISONE. [Concomitant]
     Active Substance: HYDROCORTISONE
     Dosage: UNK
     Route: 048
  2. INDOMETHACIN [INDOMETACIN] [Suspect]
     Active Substance: INDOMETHACIN
     Dosage: UNK
     Route: 065
  3. LEFLUNOMIDE. [Suspect]
     Active Substance: LEFLUNOMIDE
     Dosage: 1 G, 2X/DAY
     Route: 065
  4. METHOTREXATE SODIUM. [Suspect]
     Active Substance: METHOTREXATE SODIUM
     Dosage: 20 MG
     Route: 058
  5. CELEBREX [Concomitant]
     Active Substance: CELECOXIB
     Route: 048
  6. IBUPROFEN. [Concomitant]
     Active Substance: IBUPROFEN
     Route: 048
  7. CORTISONE [Concomitant]
     Active Substance: CORTISONE
     Route: 048
  8. SULFASALAZINE. [Concomitant]
     Active Substance: SULFASALAZINE
     Route: 048
  9. VOLTAREN EMULGEL [Concomitant]
     Active Substance: DICLOFENAC DIETHYLAMINE
     Route: 061
  10. MORPHINE [Suspect]
     Active Substance: MORPHINE
     Route: 048
  11. CORTISONE [Concomitant]
     Active Substance: CORTISONE
     Dosage: UNK
     Route: 030
  12. HYDROCORTISONE. [Concomitant]
     Active Substance: HYDROCORTISONE
     Dosage: UNK
     Route: 030
  13. HYDROXYCHLOROQUINE SULFATE. [Concomitant]
     Active Substance: HYDROXYCHLOROQUINE SULFATE
  14. METHOTREXATE SODIUM. [Suspect]
     Active Substance: METHOTREXATE SODIUM
     Dosage: 1 G, 2X/DAY
     Route: 065
  15. ERELZI [Suspect]
     Active Substance: ETANERCEPT-SZZS
     Indication: RHEUMATOID ARTHRITIS
     Dosage: UNK
     Route: 065
  16. ERELZI [Suspect]
     Active Substance: ETANERCEPT-SZZS
     Dosage: 50 MG, WEEKLY
     Route: 058
  17. TYLENOL [Concomitant]
     Active Substance: ACETAMINOPHEN
     Indication: ARTHRITIS
     Route: 048

REACTIONS (12)
  - Drug intolerance [Unknown]
  - Musculoskeletal stiffness [Unknown]
  - C-reactive protein increased [Unknown]
  - Dizziness [Unknown]
  - Wrong technique in device usage process [Unknown]
  - Nausea [Unknown]
  - Product dose omission issue [Unknown]
  - Pain [Unknown]
  - Mycobacterium tuberculosis complex test positive [Unknown]
  - Synovitis [Unknown]
  - Drug ineffective [Unknown]
  - Rheumatoid arthritis [Unknown]
